FAERS Safety Report 9467018 (Version 1)
Quarter: 2013Q3

REPORT INFORMATION
  Report Type: Spontaneous
  Country: US (occurrence: US)
  Receive Date: 20130820
  Receipt Date: 20130820
  Transmission Date: 20140515
  Serious: Yes (Hospitalization)
  Sender: FDA-Public Use
  Company Number: US-GLAXOSMITHKLINE-A1037862A

PATIENT
  Age: 73 Year
  Sex: Female

DRUGS (14)
  1. ADVAIR [Suspect]
     Indication: ASTHMA
     Dosage: 1PUFF TWICE PER DAY
     Route: 055
     Dates: start: 2010
  2. ADVAIR [Suspect]
     Indication: ASTHMA
     Dosage: 1PUFF TWICE PER DAY
     Route: 055
     Dates: start: 201308
  3. PREDNISONE [Concomitant]
  4. SPIRIVA [Concomitant]
  5. WARFARIN [Concomitant]
  6. CARTIA [Concomitant]
  7. AMIODARONE [Concomitant]
  8. ENALAPRIL [Concomitant]
  9. NASONEX [Concomitant]
  10. MUCINEX [Concomitant]
  11. OMEGA 3 [Concomitant]
  12. COQ10 [Concomitant]
  13. MULTIVITAMIN [Concomitant]
  14. VITAMIN D3 [Concomitant]

REACTIONS (4)
  - Pericardial effusion [Unknown]
  - Atrial fibrillation [Unknown]
  - Dyspnoea [Not Recovered/Not Resolved]
  - Lung disorder [Unknown]
